FAERS Safety Report 6309594-2 (Version None)
Quarter: 2009Q3

REPORT INFORMATION
  Report Type: 
  Country: None (occurrence: None)
  Receive Date: 20090814
  Receipt Date: 20090803
  Transmission Date: 20100115
  Serious: Yes (Other)
  Sender: FDA-Public Use
  Company Number: GB-JNJFOC-20090705695

PATIENT
  Age: 62 Year
  Sex: Male
  Weight: 86 kg

DRUGS (9)
  1. REMICADE [Suspect]
     Indication: RHEUMATOID ARTHRITIS
     Route: 042
  2. MTX [Concomitant]
  3. PREDNISONE [Concomitant]
  4. NAPROXEN [Concomitant]
  5. BISOPROLOL [Concomitant]
  6. DOXAZOSIN [Concomitant]
  7. AMLODIPINE [Concomitant]
  8. HRT [Concomitant]
  9. ACETAMINOPHEN WITH PROPOXYPHENE HCL TAB [Concomitant]

REACTIONS (3)
  - LOWER RESPIRATORY TRACT INFECTION [None]
  - LUNG NEOPLASM [None]
  - PULMONARY FIBROSIS [None]
